FAERS Safety Report 9654082 (Version 4)
Quarter: 2014Q1

REPORT INFORMATION
  Report Type: Report from Study
  Country: HU (occurrence: HU)
  Receive Date: 20131029
  Receipt Date: 20140319
  Transmission Date: 20141002
  Serious: Yes (Hospitalization)
  Sender: FDA-Public Use
  Company Number: HU-ELI_LILLY_AND_COMPANY-HU201310006075

PATIENT
  Age: 60 Year
  Sex: Male
  Weight: 92.5 kg

DRUGS (6)
  1. OLANZAPINE LONG-ACTING IM [Suspect]
     Indication: SCHIZOPHRENIA
     Dosage: 300 MG, EVERY 3 WEEKS
     Route: 030
     Dates: start: 20121211
  2. CLOZAPINE [Concomitant]
     Indication: SCHIZOPHRENIA
     Dosage: 25 MG, 2X1
     Route: 048
     Dates: start: 20130521
  3. CLOZAPINE [Concomitant]
     Indication: ANXIETY DISORDER
  4. CLOZAPINE [Concomitant]
     Indication: INSOMNIA
  5. ALPRAZOLAM [Concomitant]
     Indication: SCHIZOPHRENIA
     Dosage: 0.5 MG, 2X1
     Dates: start: 20120521
  6. ALPRAZOLAM [Concomitant]
     Indication: ANXIETY

REACTIONS (9)
  - Feeling abnormal [Recovered/Resolved]
  - Cyanosis [Recovered/Resolved]
  - Cardiopulmonary failure [Recovered/Resolved]
  - Confusional state [Recovered/Resolved]
  - Muscle twitching [Recovered/Resolved]
  - Somnolence [Recovered/Resolved]
  - Disorientation [Recovered/Resolved]
  - Sedation [Recovered/Resolved]
  - Dyspnoea [Recovered/Resolved]
